FAERS Safety Report 8010827-5 (Version None)
Quarter: 2011Q4

REPORT INFORMATION
  Report Type: 
  Country: None (occurrence: None)
  Receive Date: 20111228
  Receipt Date: 20111227
  Transmission Date: 20120403
  Serious: Yes (Hospitalization)
  Sender: FDA-Public Use
  Company Number: JP-B.I. PHARMACEUTICALS,INC./RIDGEFIELD-2011-BP-23966NB

PATIENT
  Sex: Male
  Weight: 77.8 kg

DRUGS (5)
  1. ASPIRIN [Suspect]
     Indication: ARTERIOSCLEROSIS
     Dosage: 100 MG
     Route: 048
     Dates: start: 19990101, end: 20110930
  2. CARVEDILOL [Concomitant]
     Indication: HYPERTENSION
     Dosage: 20 MG
     Route: 048
     Dates: start: 20070701
  3. PRADAXA [Suspect]
     Indication: PROPHYLAXIS
     Dosage: 300 MG
     Route: 048
     Dates: start: 20110909, end: 20111004
  4. ADALAT [Concomitant]
     Indication: HYPERTENSION
     Dosage: 40 MG
     Route: 048
     Dates: start: 20071201
  5. MICARDIS [Concomitant]
     Indication: HYPERTENSION
     Dosage: 80 MG
     Route: 048
     Dates: start: 20060901

REACTIONS (4)
  - OESOPHAGITIS [None]
  - PERIPHERAL ARTERIAL OCCLUSIVE DISEASE [None]
  - EMBOLISM [None]
  - CEREBRAL INFARCTION [None]
